FAERS Safety Report 4425276-6 (Version None)
Quarter: 2004Q3

REPORT INFORMATION
  Report Type: 
  Country: None (occurrence: None)
  Receive Date: 20040809
  Receipt Date: 20020327
  Transmission Date: 20050211
  Serious: No
  Sender: FDA-Public Use
  Company Number: 2002UW04381

PATIENT

DRUGS (1)
  1. DIPRIVAN [Suspect]
     Dosage: 1%

REACTIONS (2)
  - CIRCULATORY COLLAPSE [None]
  - SHOCK [None]
